FAERS Safety Report 19195533 (Version 1)
Quarter: 2021Q2

REPORT INFORMATION
  Report Type: Spontaneous
  Country: CA (occurrence: CA)
  Receive Date: 20210429
  Receipt Date: 20210429
  Transmission Date: 20210717
  Serious: Yes (Hospitalization, Other)
  Sender: FDA-Public Use
  Company Number: CA-BRISTOL-MYERS SQUIBB COMPANY-BMS-2021-038390

PATIENT
  Age: 70 Year
  Sex: Female

DRUGS (2)
  1. REMODULIN [Suspect]
     Active Substance: TREPROSTINIL
     Indication: PRODUCT USED FOR UNKNOWN INDICATION
     Dosage: UNKNOWN MG/ML,CONTINUING
     Route: 058
  2. WARFARIN SODIUM. [Suspect]
     Active Substance: WARFARIN SODIUM
     Indication: PRODUCT USED FOR UNKNOWN INDICATION
     Route: 065

REACTIONS (11)
  - Decreased appetite [Unknown]
  - International normalised ratio abnormal [Unknown]
  - Oxygen saturation decreased [Unknown]
  - Infusion site swelling [Unknown]
  - Dyspnoea [Unknown]
  - Nausea [Unknown]
  - Peripheral swelling [Unknown]
  - Pulmonary thrombosis [Recovered/Resolved]
  - Infusion site pain [Unknown]
  - Weight decreased [Unknown]
  - Fatigue [Not Recovered/Not Resolved]
